FAERS Safety Report 7003794-4 (Version None)
Quarter: 2010Q3

REPORT INFORMATION
  Report Type: 
  Country: None (occurrence: None)
  Receive Date: 20100920
  Receipt Date: 20091208
  Transmission Date: 20110219
  Serious: No
  Sender: FDA-Public Use
  Company Number: US-WYE-H12576109

PATIENT
  Age: 71 Year
  Sex: Female
  Weight: 71.73 kg

DRUGS (6)
  1. PRISTIQ [Suspect]
     Indication: DEPRESSION
     Route: 048
     Dates: start: 20091001, end: 20091204
  2. PRISTIQ [Suspect]
     Indication: ANXIETY
  3. MULTI-VITAMINS [Concomitant]
  4. ASCORBIC ACID/CHONDROITIN SULFATE/GLUCOSAMINE SULFATE/MANGANESE [Concomitant]
  5. ACETYLSALICYLIC ACID [Concomitant]
  6. FISH OIL, HYDROGENATED [Concomitant]

REACTIONS (7)
  - BLOOD PRESSURE INCREASED [None]
  - CONDITION AGGRAVATED [None]
  - DRUG WITHDRAWAL SYNDROME [None]
  - FEELING ABNORMAL [None]
  - HEADACHE [None]
  - TENSION HEADACHE [None]
  - TINNITUS [None]
